FAERS Safety Report 24926881 (Version 3)
Quarter: 2025Q3

REPORT INFORMATION
  Report Type: Spontaneous
  Country: JP (occurrence: JP)
  Receive Date: 20250205
  Receipt Date: 20250813
  Transmission Date: 20251021
  Serious: Yes (Hospitalization, Other)
  Sender: GLAXOSMITHKLINE
  Company Number: JP-TAKEDA-2025TJP000403

PATIENT
  Sex: Female

DRUGS (4)
  1. ZEJULA [Suspect]
     Active Substance: NIRAPARIB
     Indication: Ovarian cancer
     Dosage: 200 MG, QD
  2. ZEJULA [Suspect]
     Active Substance: NIRAPARIB
  3. ZEJULA [Suspect]
     Active Substance: NIRAPARIB
  4. ZEJULA [Suspect]
     Active Substance: NIRAPARIB

REACTIONS (5)
  - Hypoglycaemia [Recovering/Resolving]
  - Neuropathy peripheral [Recovering/Resolving]
  - Vomiting [Recovered/Resolved]
  - Urinary tract infection [Recovering/Resolving]
  - Influenza [Recovered/Resolved]

NARRATIVE: CASE EVENT DATE: 20250107
